FAERS Safety Report 5529194-1 (Version None)
Quarter: 2007Q4

REPORT INFORMATION
  Report Type: 
  Country: None (occurrence: None)
  Receive Date: 20071129
  Receipt Date: 20070503
  Transmission Date: 20080405
  Serious: No
  Sender: FDA-Public Use
  Company Number: A0649857A

PATIENT
  Sex: Female

DRUGS (2)
  1. WELLBUTRIN SR [Suspect]
     Indication: DRUG USE FOR UNKNOWN INDICATION
     Route: 048
     Dates: start: 20070412
  2. NO CONCURRENT MEDICATION [Concomitant]

REACTIONS (3)
  - DRY MOUTH [None]
  - DRY THROAT [None]
  - INSOMNIA [None]
